FAERS Safety Report 6519646-X (Version None)
Quarter: 2009Q4

REPORT INFORMATION
  Report Type: 
  Country: None (occurrence: None)
  Receive Date: 20091228
  Receipt Date: 20091214
  Transmission Date: 20100525
  Serious: Yes (Hospitalization)
  Sender: FDA-Public Use
  Company Number: FR-ALLERGAN-0917606US

PATIENT
  Age: 81 Year
  Sex: Female

DRUGS (5)
  1. TROSPIUM CHLORIDE [Suspect]
     Indication: DRUG USE FOR UNKNOWN INDICATION
     Dosage: UNK
     Route: 048
     Dates: end: 20090604
  2. NOCTAMIDE [Suspect]
     Dosage: UNK
     Route: 048
     Dates: end: 20090604
  3. RISPERDAL [Suspect]
     Dosage: UNK
     Route: 048
     Dates: end: 20090604
  4. TEMESTA [Suspect]
     Dosage: UNK
     Route: 048
     Dates: end: 20090605
  5. EFFERALGAN CODEINE [Suspect]
     Dosage: UNK
     Route: 048
     Dates: end: 20090605

REACTIONS (4)
  - DECREASED APPETITE [None]
  - FALL [None]
  - HYPOKALAEMIA [None]
  - VOMITING [None]
